FAERS Safety Report 4341364-7 (Version None)
Quarter: 2004Q2

REPORT INFORMATION
  Report Type: 
  Country: None (occurrence: None)
  Receive Date: 20040412
  Receipt Date: 20040308
  Transmission Date: 20050107
  Serious: Yes (Hospitalization)
  Sender: FDA-Public Use
  Company Number: 2004008869

PATIENT
  Age: 80 Year
  Sex: Female

DRUGS (7)
  1. GEODON [Suspect]
     Indication: PSYCHOTIC DISORDER
     Dosage: 10 MG (2 DOSES), INTRAMUSCULAR
     Route: 030
     Dates: start: 20031118
  2. ESCITALOPRAM (ESCITALOPRAM) [Concomitant]
  3. METIPRANOLOL (METIPRANOLOL) [Concomitant]
  4. PILOCARPINE (PILOCARPINE) [Concomitant]
  5. DORZOLAMIDE HYDROCHLORIDE (DORZOLAMIDE HYDROCHLORIDE) [Concomitant]
  6. ACETAMINOPHEN [Concomitant]
  7. LORAZEPAM [Concomitant]

REACTIONS (1)
  - HYPOTENSION [None]
